FAERS Safety Report 9964257 (Version 1)
Quarter: 2014Q1

REPORT INFORMATION
  Report Type: Spontaneous
  Country: NL (occurrence: NL)
  Receive Date: 20140305
  Receipt Date: 20140305
  Transmission Date: 20141002
  Serious: Yes (Other)
  Sender: FDA-Public Use
  Company Number: NL-BRISTOL-MYERS SQUIBB COMPANY-20338844

PATIENT
  Age: 75 Year
  Sex: Female

DRUGS (9)
  1. KENACORT-A40 INJ 40 MG [Suspect]
     Indication: PERIARTHRITIS
     Dates: start: 20140206
  2. TERIPARATIDE [Suspect]
     Indication: OSTEOPOROSIS
     Dosage: 1 DF=20 MCG/ML INJ FLUID
     Dates: start: 20140129
  3. DEPAKINE [Suspect]
  4. LIDOCAINE [Suspect]
     Dates: start: 20140206
  5. PHENOBARBITAL SODIUM [Concomitant]
     Dates: start: 1970
  6. ETHOSUXIMIDE [Concomitant]
     Dates: start: 1970
  7. CALCICHEW [Concomitant]
     Dosage: 1 DF=500MG/400IE ?CHEWING TABLET
     Dates: start: 20040601
  8. PLAQUENIL SULFATE [Concomitant]
     Dates: start: 20050803
  9. ALENDRONIC ACID [Concomitant]
     Dates: start: 20051111, end: 2014

REACTIONS (1)
  - Petit mal epilepsy [Recovering/Resolving]
